FAERS Safety Report 8801511 (Version 1)
Quarter: 2012Q4

REPORT INFORMATION
  Report Type: 
  Country: US (occurrence: US)
  Receive Date: 20120921
  Receipt Date: 20120921
  Transmission Date: 20130627
  Serious: Yes (Hospitalization, Other)
  Sender: FDA-Public Use
  Company Number: US-ABBOTT-12P-163-0979367-00

PATIENT
  Sex: Male
  Weight: 73.55 kg

DRUGS (7)
  1. HUMIRA [Suspect]
     Indication: PSORIATIC ARTHROPATHY
     Dates: start: 2010, end: 201206
  2. HUMIRA [Suspect]
     Indication: RHEUMATOID ARTHRITIS
  3. ENBREL [Suspect]
     Indication: PRODUCT USED FOR UNKNOWN INDICATION
     Dates: start: 2007, end: 2010
  4. ALLOPURINOL WYETH [Concomitant]
     Indication: PRODUCT USED FOR UNKNOWN INDICATION
  5. COLCHICINE [Concomitant]
     Indication: GOUT
  6. METHOTREXATE MERCK [Concomitant]
     Indication: PRODUCT USED FOR UNKNOWN INDICATION
  7. DYAZIDE [Concomitant]
     Indication: PRODUCT USED FOR UNKNOWN INDICATION

REACTIONS (9)
  - Non-Hodgkin^s lymphoma [Not Recovered/Not Resolved]
  - Asthenia [Not Recovered/Not Resolved]
  - Weight decreased [Not Recovered/Not Resolved]
  - Influenza like illness [Recovering/Resolving]
  - Mobility decreased [Recovering/Resolving]
  - Peroneal nerve palsy [Recovering/Resolving]
  - Lymphadenopathy [Not Recovered/Not Resolved]
  - Renal failure [Recovering/Resolving]
  - Walking aid user [Not Recovered/Not Resolved]
